FAERS Safety Report 9778369 (Version 4)
Quarter: 2016Q1

REPORT INFORMATION
  Report Type: Spontaneous
  Country: US (occurrence: US)
  Receive Date: 20131223
  Receipt Date: 20160202
  Transmission Date: 20160526
  Serious: Yes (Other)
  Sender: FDA-Public Use
  Company Number: US-UCBSA-106568

PATIENT
  Age: 47 Year
  Sex: Male
  Weight: 93.4 kg

DRUGS (9)
  1. ASA [Concomitant]
     Active Substance: ASPIRIN
     Route: 048
  2. VIMPAT [Suspect]
     Active Substance: LACOSAMIDE
     Indication: SEIZURE
     Dosage: 200 MG 2/DAILY; STRENGTH: 200 MG, ONE IN MORNING AND ONE AT NIGHT
     Route: 048
     Dates: start: 2013
  3. VIMPAT [Suspect]
     Active Substance: LACOSAMIDE
     Indication: EPILEPSY
  4. VIMPAT [Suspect]
     Active Substance: LACOSAMIDE
     Indication: EPILEPSY
  5. PROPRANOLOL [Concomitant]
     Active Substance: PROPRANOLOL\PROPRANOLOL HYDROCHLORIDE
     Indication: SEIZURE
     Dosage: ONE IN AM AND ONE AT BED TIME
     Route: 048
  6. VITAMINS [Concomitant]
     Active Substance: VITAMINS
  7. VIMPAT [Suspect]
     Active Substance: LACOSAMIDE
     Indication: SEIZURE
     Dosage: 40 MG, 2X/DAY (BID)
  8. KEPPRA [Suspect]
     Active Substance: LEVETIRACETAM
     Indication: EPILEPSY
     Dosage: 250MG THRICE A DAY TWO IN AM AND ONE AT MID DAY AND TWO AT BED TIME
     Route: 048
     Dates: start: 2008
  9. KEPPRA [Suspect]
     Active Substance: LEVETIRACETAM
     Dosage: 500(UNITS UNSPECIFIED), TWO  PILLS THREE TIMES A DAY
     Route: 048
     Dates: start: 2008

REACTIONS (3)
  - Generalised tonic-clonic seizure [Recovered/Resolved]
  - Seizure [Unknown]
  - Petit mal epilepsy [Not Recovered/Not Resolved]

NARRATIVE: CASE EVENT DATE: 201312
